FAERS Safety Report 5449145-8 (Version None)
Quarter: 2007Q3

REPORT INFORMATION
  Report Type: 
  Country: None (occurrence: None)
  Receive Date: 20070911
  Receipt Date: 20070904
  Transmission Date: 20080115
  Serious: Yes (Hospitalization)
  Sender: FDA-Public Use
  Company Number: IT-ROXANE LABORATORIES, INC-2007-BP-20603RO

PATIENT
  Age: 51 Year
  Sex: Male

DRUGS (5)
  1. CYCLOPHOSPHAMIDE [Suspect]
     Indication: B-CELL LYMPHOMA
     Dates: start: 20050801, end: 20051001
  2. DOXORUBICIN HCL [Suspect]
     Indication: B-CELL LYMPHOMA
     Dates: start: 20050801, end: 20051001
  3. VINCRISTINE [Suspect]
     Indication: B-CELL LYMPHOMA
     Dates: start: 20050801, end: 20051001
  4. METHYLPREDNISOLONE 16MG TAB [Suspect]
     Indication: B-CELL LYMPHOMA
     Dates: start: 20050801, end: 20051001
  5. RITUXIMAB [Suspect]
     Indication: B-CELL LYMPHOMA
     Dates: end: 20051001

REACTIONS (10)
  - AREFLEXIA [None]
  - ASTHENIA [None]
  - CSF PROTEIN INCREASED [None]
  - DYSPHAGIA [None]
  - GUILLAIN-BARRE SYNDROME [None]
  - LYMPHOCYTE COUNT DECREASED [None]
  - PARAESTHESIA [None]
  - PYREXIA [None]
  - QUADRIPARESIS [None]
  - WHITE BLOOD CELL COUNT DECREASED [None]
